FAERS Safety Report 6958816-3 (Version None)
Quarter: 2010Q3

REPORT INFORMATION
  Report Type: 
  Country: None (occurrence: None)
  Receive Date: 20100831
  Receipt Date: 20100119
  Transmission Date: 20110219
  Serious: Yes (Death, Life-Threatening, Hospitalization)
  Sender: FDA-Public Use
  Company Number: PHHY2010DE03568

PATIENT
  Sex: Male

DRUGS (4)
  1. TIMOX [Suspect]
     Dosage: 900 MG, 1 DAY
     Dates: start: 20080724, end: 20080726
  2. DISTRANEURIN [Suspect]
     Dosage: 6 DF, 1 DAYS
     Route: 048
     Dates: start: 20080724, end: 20080726
  3. PANTOPRAZOLE SODIUM [Suspect]
     Dosage: 40 MG, 1DAY
     Dates: start: 20080723, end: 20080726
  4. BETABION [Suspect]
     Dosage: 300 MG/DAY
     Dates: start: 20080722, end: 20080726

REACTIONS (4)
  - ALCOHOL DETOXIFICATION [None]
  - CARDIAC FAILURE [None]
  - CARDIOVASCULAR INSUFFICIENCY [None]
  - RESPIRATORY ARREST [None]
